FAERS Safety Report 19145932 (Version 8)
Quarter: 2021Q3

REPORT INFORMATION
  Report Type: Report from Study
  Country: US (occurrence: US)
  Receive Date: 20210416
  Receipt Date: 20210927
  Transmission Date: 20211014
  Serious: Yes (Other)
  Sender: FDA-Public Use
  Company Number: NVSC2021US085884

PATIENT
  Sex: Female

DRUGS (1)
  1. COSENTYX [Suspect]
     Active Substance: SECUKINUMAB
     Indication: PSORIASIS
     Dosage: 300 MG/KG, QMO
     Route: 058

REACTIONS (8)
  - Dry skin [Unknown]
  - Skin fissures [Unknown]
  - Blister [Unknown]
  - Nephrolithiasis [Unknown]
  - Onychomadesis [Unknown]
  - Psoriasis [Recovering/Resolving]
  - Skin haemorrhage [Unknown]
  - Allergy to metals [Unknown]
